FAERS Safety Report 5675765-1 (Version None)
Quarter: 2008Q1

REPORT INFORMATION
  Report Type: 
  Country: None (occurrence: None)
  Receive Date: 20080318
  Receipt Date: 20080310
  Transmission Date: 20080703
  Serious: Yes (Hospitalization)
  Sender: FDA-Public Use
  Company Number: 2008006017

PATIENT
  Age: 54 Year
  Sex: Female
  Weight: 181.4388 kg

DRUGS (1)
  1. ZYRTEC [Suspect]
     Indication: HYPERSENSITIVITY
     Dosage: 1 IR TABLET DAILY (10 MG), ORAL
     Route: 048
     Dates: start: 20080229

REACTIONS (2)
  - ILL-DEFINED DISORDER [None]
  - RESPIRATORY ARREST [None]
